FAERS Safety Report 12668841 (Version 1)
Quarter: 2016Q3

REPORT INFORMATION
  Report Type: Report from Study
  Country: US (occurrence: US)
  Receive Date: 20160819
  Receipt Date: 20160819
  Transmission Date: 20161109
  Serious: Yes (Death)
  Sender: FDA-Public Use
  Company Number: US-JNJFOC-20160516735

PATIENT
  Age: 77 Year
  Sex: Male

DRUGS (15)
  1. IMBRUVICA [Suspect]
     Active Substance: IBRUTINIB
     Indication: CHRONIC LYMPHOCYTIC LEUKAEMIA
     Route: 048
     Dates: start: 20150728
  2. HYDROCODONE [Concomitant]
     Active Substance: HYDROCODONE
  3. BRILINTA [Concomitant]
     Active Substance: TICAGRELOR
  4. POTASSIUM [Concomitant]
     Active Substance: POTASSIUM
  5. ZOFRAN [Concomitant]
     Active Substance: ONDANSETRON HYDROCHLORIDE
  6. MIDODRINE [Concomitant]
     Active Substance: MIDODRINE
  7. CARVEDILOL. [Concomitant]
     Active Substance: CARVEDILOL
  8. PROTONIX [Concomitant]
     Active Substance: PANTOPRAZOLE SODIUM
  9. SYNTHROID [Concomitant]
     Active Substance: LEVOTHYROXINE SODIUM
  10. TERAZOSINE [Concomitant]
  11. ASA [Concomitant]
     Active Substance: ASPIRIN
  12. LORAZEPAM. [Concomitant]
     Active Substance: LORAZEPAM
  13. TORSEMIDE. [Concomitant]
     Active Substance: TORSEMIDE
  14. SPIRONOLACTONE. [Concomitant]
     Active Substance: SPIRONOLACTONE
  15. COMPAZINE [Concomitant]
     Active Substance: PROCHLORPERAZINE MALEATE

REACTIONS (4)
  - Cardiac failure congestive [Fatal]
  - Product use issue [Not Recovered/Not Resolved]
  - Off label use [Not Recovered/Not Resolved]
  - Arrhythmia [Fatal]

NARRATIVE: CASE EVENT DATE: 20150728
